FAERS Safety Report 8440405-5 (Version None)
Quarter: 2012Q2

REPORT INFORMATION
  Report Type: 
  Country: None (occurrence: None)
  Receive Date: 20120615
  Receipt Date: 20120602
  Transmission Date: 20120825
  Serious: Yes (Other)
  Sender: FDA-Public Use
  Company Number: US-WATSON-2012-09817

PATIENT
  Age: 25 Year
  Sex: Female

DRUGS (3)
  1. LEVONORGESTREL [Suspect]
     Dosage: UNK
     Route: 048
  2. LEVONORGESTREL [Suspect]
     Indication: PRODUCT USED FOR UNKNOWN INDICATION
     Dosage: UNK
     Route: 048
     Dates: start: 20120401
  3. LEVONORGESTREL [Suspect]
     Dosage: UNK
     Route: 048

REACTIONS (2)
  - MENSTRUATION IRREGULAR [None]
  - ABORTION SPONTANEOUS [None]
